FAERS Safety Report 24745463 (Version 1)
Quarter: 2024Q4

REPORT INFORMATION
  Report Type: Spontaneous
  Country: US (occurrence: US)
  Receive Date: 20241217
  Receipt Date: 20241217
  Transmission Date: 20250114
  Serious: No
  Sender: JOHNSON AND JOHNSON
  Company Number: US-KENVUE-20241101053

PATIENT
  Age: 50 Year

DRUGS (3)
  1. ACETAMINOPHEN [Suspect]
     Active Substance: ACETAMINOPHEN
     Indication: Pain in extremity
     Dosage: 500 MG
     Route: 065
     Dates: start: 20241016
  2. OPSUMIT [Concomitant]
     Active Substance: MACITENTAN
     Indication: Product used for unknown indication
     Dosage: 20 MILLIGRAM, ONCE A DAY
     Route: 065
     Dates: start: 202404
  3. UPTRAVI [Concomitant]
     Active Substance: SELEXIPAG
     Indication: Product used for unknown indication
     Dosage: 1000 MILLIGRAM, ONCE IN TWO DAYS
     Route: 065
     Dates: start: 202409

REACTIONS (1)
  - Drug ineffective [Unknown]

NARRATIVE: CASE EVENT DATE: 20241016
